FAERS Safety Report 7321636-4 (Version None)
Quarter: 2011Q1

REPORT INFORMATION
  Report Type: 
  Country: None (occurrence: None)
  Receive Date: 20110228
  Receipt Date: 20101108
  Transmission Date: 20110831
  Serious: No
  Sender: FDA-Public Use
  Company Number: A0885986A

PATIENT
  Sex: Female

DRUGS (1)
  1. VALTREX [Suspect]
     Dosage: 500MG AT NIGHT
     Route: 065
     Dates: start: 20100915

REACTIONS (2)
  - VERTIGO [None]
  - LABYRINTHITIS [None]
